FAERS Safety Report 7207061-5 (Version None)
Quarter: 2011Q1

REPORT INFORMATION
  Report Type: 
  Country: None (occurrence: None)
  Receive Date: 20110103
  Receipt Date: 20101222
  Transmission Date: 20110831
  Serious: Yes (Other)
  Sender: FDA-Public Use
  Company Number: B0691461A

PATIENT
  Sex: Male

DRUGS (3)
  1. CEFTAZIDIME [Suspect]
     Indication: PROPHYLAXIS
     Dosage: 500MG PER DAY
     Route: 042
     Dates: start: 20100331, end: 20100406
  2. BBK8 [Suspect]
     Indication: PROPHYLAXIS
     Dosage: 270MG PER DAY
     Route: 042
     Dates: start: 20100331, end: 20100406
  3. ZOVIRAX [Suspect]
     Indication: PROPHYLAXIS
     Dosage: 18ML PER DAY
     Route: 048
     Dates: start: 20100331, end: 20100406

REACTIONS (1)
  - DIARRHOEA HAEMORRHAGIC [None]
